FAERS Safety Report 23445138 (Version 1)
Quarter: 2024Q1

REPORT INFORMATION
  Report Type: Other
  Country: RU (occurrence: None)
  Receive Date: 20240125
  Receipt Date: 20240125
  Transmission Date: 20240410
  Serious: Yes (Other)
  Sender: FDA-Public Use
  Company Number: RU-ROCHE-3494694

PATIENT
  Age: 52 Year
  Sex: Female

DRUGS (12)
  1. TRASTUZUMAB [Suspect]
     Active Substance: TRASTUZUMAB
     Indication: HER2 positive breast cancer
     Dosage: RECEIVED 6 CYCLES OF CONVENTIONAL ADJUVANT TAXANE-BASED THERAPY
     Route: 065
  2. TRASTUZUMAB [Suspect]
     Active Substance: TRASTUZUMAB
     Dosage: SINGLE-AGENT TRASTUZUMAB UNTIL MAY 2017
     Route: 065
  3. TRASTUZUMAB [Suspect]
     Active Substance: TRASTUZUMAB
     Dosage: SHE THEN RECEIVED 6 CYCLES OF CARBOPLATIN/DOCETAXEL/ TRASTUZUMAB/PERTUZUMAB, FOLLOWED BY 52 CYCLES O
     Route: 065
  4. ADO-TRASTUZUMAB EMTANSINE [Suspect]
     Active Substance: ADO-TRASTUZUMAB EMTANSINE
     Indication: HER2 positive breast cancer
     Route: 065
  5. BEVACIZUMAB [Suspect]
     Active Substance: BEVACIZUMAB
     Indication: HER2 positive breast cancer
     Dosage: 4 CYCLES EVERY 2 WEEKS AT A DOSE OF 10 MG/KG
     Route: 065
     Dates: start: 20221208
  6. BEVACIZUMAB [Suspect]
     Active Substance: BEVACIZUMAB
     Route: 065
     Dates: start: 202303
  7. PERTUZUMAB [Suspect]
     Active Substance: PERTUZUMAB
     Indication: HER2 positive breast cancer
     Dosage: SHE THEN RECEIVED 6 CYCLES OF CARBOPLATIN/DOCETAXEL/ TRASTUZUMAB/PERTUZUMAB, FOLLOWED BY 52 CYCLES O
     Route: 065
  8. CARBOPLATIN [Suspect]
     Active Substance: CARBOPLATIN
     Indication: HER2 positive breast cancer
     Route: 065
  9. DOCETAXEL [Suspect]
     Active Substance: DOCETAXEL\DOCETAXEL ANHYDROUS
     Indication: HER2 positive breast cancer
     Route: 065
  10. CYCLOPHOSPHAMIDE [Concomitant]
     Active Substance: CYCLOPHOSPHAMIDE
  11. MITOXANTRONE [Concomitant]
     Active Substance: MITOXANTRONE HYDROCHLORIDE
  12. FLUOROURACIL [Concomitant]
     Active Substance: FLUOROURACIL

REACTIONS (2)
  - Disease progression [Unknown]
  - Metastases to central nervous system [Unknown]
